FAERS Safety Report 5333348-7 (Version None)
Quarter: 2007Q2

REPORT INFORMATION
  Report Type: 
  Country: None (occurrence: None)
  Receive Date: 20070524
  Receipt Date: 20070510
  Transmission Date: 20071010
  Serious: Yes (Other)
  Sender: FDA-Public Use
  Company Number: US-ELI_LILLY_AND_COMPANY-US200705000099

PATIENT
  Age: 76 Year
  Sex: Female

DRUGS (2)
  1. FORTEO [Suspect]
     Indication: OSTEOPOROSIS
     Dosage: 20 UG, DAILY (1/D)
     Dates: start: 20060613
  2. ANTIBIOTICS [Concomitant]

REACTIONS (4)
  - CARDIAC DISORDER [None]
  - INJECTION SITE PAIN [None]
  - MUSCLE SPASMS [None]
  - WEIGHT DECREASED [None]
